FAERS Safety Report 18649209 (Version 1)
Quarter: 2020Q4

REPORT INFORMATION
  Report Type: Spontaneous
  Country: CN (occurrence: CN)
  Receive Date: 20201222
  Receipt Date: 20201222
  Transmission Date: 20210114
  Serious: Yes (Life-Threatening, Other)
  Sender: FDA-Public Use
  Company Number: CN-BAYER-2020-283474

PATIENT
  Age: 66 Year
  Sex: Female
  Weight: 60 kg

DRUGS (4)
  1. GLICLAZIDE [Interacting]
     Active Substance: GLICLAZIDE
     Indication: TYPE 2 DIABETES MELLITUS
     Dosage: 60 MG, QD
     Route: 048
     Dates: start: 20201123, end: 20201127
  2. GLICLAZIDE [Interacting]
     Active Substance: GLICLAZIDE
     Indication: TYPE 2 DIABETES MELLITUS
     Dosage: 1 TABLET IN THE MORNING, 0.5 TABLET IN THE EVENING
     Route: 048
     Dates: start: 20201130, end: 20201203
  3. GLICLAZIDE [Interacting]
     Active Substance: GLICLAZIDE
     Indication: TYPE 2 DIABETES MELLITUS
     Dosage: 60 MG, BID
     Route: 048
     Dates: start: 20201128, end: 20201129
  4. GLUCOBAY [Suspect]
     Active Substance: ACARBOSE
     Indication: TYPE 2 DIABETES MELLITUS
     Dosage: 50 MG, TID
     Route: 048
     Dates: start: 20201123, end: 20201129

REACTIONS (5)
  - Palpitations [Recovering/Resolving]
  - Hunger [Recovering/Resolving]
  - Hypoglycaemia [Recovering/Resolving]
  - Blood glucose abnormal [None]
  - Drug interaction [None]

NARRATIVE: CASE EVENT DATE: 20201128
